FAERS Safety Report 7155125-7 (Version None)
Quarter: 2010Q4

REPORT INFORMATION
  Report Type: 
  Country: None (occurrence: None)
  Receive Date: 20101214
  Receipt Date: 20091120
  Transmission Date: 20110411
  Serious: No
  Sender: FDA-Public Use
  Company Number: US-AMGEN-KDL376054

PATIENT

DRUGS (2)
  1. ENBREL [Suspect]
     Indication: RHEUMATOID ARTHRITIS
     Dosage: 50 MG, QWK
     Route: 058
     Dates: start: 20091029
  2. METHOTREXATE [Concomitant]
     Dosage: UNK UNK, UNK

REACTIONS (4)
  - DRY EYE [None]
  - DRY MOUTH [None]
  - DYSPEPSIA [None]
  - DYSPHAGIA [None]
